FAERS Safety Report 10221501 (Version 1)
Quarter: 2014Q2

REPORT INFORMATION
  Report Type: Spontaneous
  Country: CA (occurrence: CA)
  Receive Date: 20140606
  Receipt Date: 20140606
  Transmission Date: 20141212
  Serious: Yes (Hospitalization)
  Sender: FDA-Public Use
  Company Number: CA-009507513-1406CAN001932

PATIENT
  Age: 68 Year
  Sex: Female

DRUGS (1)
  1. TEMODAL [Suspect]
     Indication: NEUROENDOCRINE TUMOUR
     Dosage: STRENGTH 5 MG, 20 MG, 100 MG, 140 MG, 250 MG
     Route: 048
     Dates: start: 201401

REACTIONS (6)
  - Lung hyperinflation [Unknown]
  - Pleural disorder [Unknown]
  - Pulmonary mass [Unknown]
  - Pneumonia [Recovering/Resolving]
  - Cough [Recovering/Resolving]
  - Flushing [Unknown]
